FAERS Safety Report 4507107-9 (Version None)
Quarter: 2004Q4

REPORT INFORMATION
  Report Type: 
  Country: None (occurrence: None)
  Receive Date: 20041122
  Receipt Date: 20041116
  Transmission Date: 20050328
  Serious: Yes (Hospitalization)
  Sender: FDA-Public Use
  Company Number: SE-MERCK-0411SWE00031

PATIENT
  Age: 66 Year
  Sex: Male

DRUGS (5)
  1. VIOXX [Suspect]
     Indication: OSTEOARTHRITIS
     Route: 048
     Dates: start: 19991221, end: 20021101
  2. BUDESONIDE [Concomitant]
     Route: 065
  3. TERBUTALINE SULFATE [Concomitant]
     Route: 065
  4. ACETAMINOPHEN [Concomitant]
     Route: 065
  5. PROPOXYPHENE NAPSYLATE [Concomitant]
     Route: 065

REACTIONS (1)
  - ANGINA PECTORIS [None]
